FAERS Safety Report 21616888 (Version 1)
Quarter: 2022Q4

REPORT INFORMATION
  Report Type: Spontaneous
  Country: US (occurrence: US)
  Receive Date: 20221118
  Receipt Date: 20221118
  Transmission Date: 20230113
  Serious: Yes (Death, Other)
  Sender: FDA-Public Use
  Company Number: US-ALLERGAN-2237863US

PATIENT
  Sex: Female
  Weight: 68.94 kg

DRUGS (14)
  1. LEXAPRO [Suspect]
     Active Substance: ESCITALOPRAM OXALATE
     Indication: Product used for unknown indication
     Dosage: 10 MG, QD
     Route: 048
  2. ALBUTEROL [Concomitant]
     Active Substance: ALBUTEROL
     Indication: Wheezing
  3. GABAPENTIN [Concomitant]
     Active Substance: GABAPENTIN
  4. CYCLOBENZAPRINE [Concomitant]
     Active Substance: CYCLOBENZAPRINE
     Indication: Muscle spasms
  5. FERROUS SULFATE [Concomitant]
     Active Substance: FERROUS SULFATE
  6. PANTOPRAZOLE [Concomitant]
     Active Substance: PANTOPRAZOLE
  7. FUROSEMIDE [Concomitant]
     Active Substance: FUROSEMIDE
  8. PREDNISONE [Concomitant]
     Active Substance: PREDNISONE
  9. ESCITALOPRAM [Concomitant]
     Active Substance: ESCITALOPRAM OXALATE
  10. TRELEGY ELLIPTA [Concomitant]
     Active Substance: FLUTICASONE FUROATE\UMECLIDINIUM BROMIDE\VILANTEROL TRIFENATATE
  11. LOSARTAN [Concomitant]
     Active Substance: LOSARTAN
  12. POTASSIUM CHLORIDE [Concomitant]
     Active Substance: POTASSIUM CHLORIDE
  13. QUETIAPINE [Concomitant]
     Active Substance: QUETIAPINE
  14. FERAHEME [Concomitant]
     Active Substance: FERUMOXYTOL NON-STOICHIOMETRIC MAGNETITE

REACTIONS (1)
  - Death [Fatal]
